FAERS Safety Report 8180304-X (Version None)
Quarter: 2012Q1

REPORT INFORMATION
  Report Type: 
  Country: None (occurrence: None)
  Receive Date: 20120229
  Receipt Date: 20120215
  Transmission Date: 20120608
  Serious: Yes (Death, Other)
  Sender: FDA-Public Use
  Company Number: THYM-1001237

PATIENT
  Age: 28 Year
  Sex: Male
  Weight: 55 kg

DRUGS (17)
  1. THYMOGLOBULIN [Suspect]
     Indication: ACUTE GRAFT VERSUS HOST DISEASE
     Dosage: 0.5 MG/KG, ONCE 2 MG/KG, ONCE 50 MG,QD
     Dates: start: 20090521, end: 20090521
  2. THYMOGLOBULIN [Suspect]
     Indication: BONE MARROW CONDITIONING REGIMEN
     Dosage: 0.5 MG/KG, ONCE 2 MG/KG, ONCE 50 MG,QD
     Dates: start: 20090521, end: 20090521
  3. THYMOGLOBULIN [Suspect]
     Indication: ACUTE GRAFT VERSUS HOST DISEASE
     Dosage: 0.5 MG/KG, ONCE 2 MG/KG, ONCE 50 MG,QD
     Dates: start: 20090427, end: 20090427
  4. THYMOGLOBULIN [Suspect]
     Indication: BONE MARROW CONDITIONING REGIMEN
     Dosage: 0.5 MG/KG, ONCE 2 MG/KG, ONCE 50 MG,QD
     Dates: start: 20090427, end: 20090427
  5. THYMOGLOBULIN [Suspect]
     Indication: ACUTE GRAFT VERSUS HOST DISEASE
     Dosage: 0.5 MG/KG, ONCE 2 MG/KG, ONCE 50 MG,QD
     Dates: start: 20090626, end: 20090629
  6. THYMOGLOBULIN [Suspect]
     Indication: BONE MARROW CONDITIONING REGIMEN
     Dosage: 0.5 MG/KG, ONCE 2 MG/KG, ONCE 50 MG,QD
     Dates: start: 20090626, end: 20090629
  7. PREDNISOLONE ACETATE [Concomitant]
  8. MEROPENEM [Concomitant]
  9. PLATELETS (PLATELETS) [Concomitant]
  10. MYCOPHENOLATE MOFETIL [Concomitant]
  11. VANCOMYCIN HYDROCHLORIDE [Concomitant]
  12. IMMUNE GLOBULIN INTRAVENOUS (HUMAN) [Concomitant]
  13. PLASMA [Concomitant]
  14. AMPHOTERICIN B [Concomitant]
  15. VORICONAZOLE [Concomitant]
  16. TACROLIMUS [Concomitant]
  17. THIOTEPA [Concomitant]

REACTIONS (2)
  - ACUTE GRAFT VERSUS HOST DISEASE [None]
  - BRONCHOPULMONARY ASPERGILLOSIS [None]
